FAERS Safety Report 8622882-X (Version None)
Quarter: 2012Q3

REPORT INFORMATION
  Report Type: 
  Country: None (occurrence: None)
  Receive Date: 20120827
  Receipt Date: 20120813
  Transmission Date: 20120928
  Serious: Yes (Other)
  Sender: FDA-Public Use
  Company Number: PHHY2010AU093868

PATIENT
  Sex: Female

DRUGS (1)
  1. ZOLEDRONOC ACID [Suspect]
     Dosage: 5 MG, UNK
     Route: 042
     Dates: start: 20091005

REACTIONS (4)
  - CHOLANGITIS [None]
  - ASTHENIA [None]
  - CORONARY ARTERY DISEASE [None]
  - MALAISE [None]
